FAERS Safety Report 9153590 (Version 1)
Quarter: 2013Q1

REPORT INFORMATION
  Report Type: Spontaneous
  Country: BR (occurrence: BR)
  Receive Date: 20130311
  Receipt Date: 20130311
  Transmission Date: 20140127
  Serious: Yes (Other)
  Sender: FDA-Public Use
  Company Number: PHHY2013BR022593

PATIENT
  Sex: Female

DRUGS (5)
  1. TRILEPTAL [Suspect]
     Indication: EPILEPSY
     Dosage: 600 MG,
  2. CITALOPRAM [Suspect]
     Indication: DEPRESSION
     Dosage: UNK UKN, UNK
  3. RIVOTRIL [Suspect]
     Indication: NERVOUS SYSTEM DISORDER
     Dosage: 2 MG, QD
  4. URBANIL [Suspect]
     Indication: EPILEPSY
     Dosage: 10 MG, TID
  5. LAMITOR [Suspect]
     Indication: EPILEPSY
     Dosage: 50 MG, TID

REACTIONS (5)
  - Brain neoplasm [Recovering/Resolving]
  - Nervous system disorder [Recovering/Resolving]
  - Fall [Recovering/Resolving]
  - Urinary incontinence [Recovering/Resolving]
  - Amnesia [Recovering/Resolving]
